FAERS Safety Report 10662723 (Version 5)
Quarter: 2015Q1

REPORT INFORMATION
  Report Type: Report from Study
  Country: US (occurrence: US)
  Receive Date: 20141218
  Receipt Date: 20150225
  Transmission Date: 20150720
  Serious: Yes (Hospitalization)
  Sender: FDA-Public Use
  Company Number: US-SA-2014SA152878

PATIENT
  Age: 45 Year
  Sex: Female

DRUGS (2)
  1. AUBAGIO [Suspect]
     Active Substance: TERIFLUNOMIDE
     Indication: MULTIPLE SCLEROSIS
     Route: 048
     Dates: start: 20141027
  2. AUBAGIO [Suspect]
     Active Substance: TERIFLUNOMIDE
     Indication: MULTIPLE SCLEROSIS
     Route: 048
     Dates: end: 20150117

REACTIONS (27)
  - Insomnia [Recovering/Resolving]
  - Mobility decreased [Unknown]
  - Diarrhoea [Not Recovered/Not Resolved]
  - Drug dose omission [Unknown]
  - Condition aggravated [Unknown]
  - Fatigue [Unknown]
  - Asthenia [Unknown]
  - Dizziness [Unknown]
  - Dyslexia [Unknown]
  - Acne [Unknown]
  - Alopecia [Unknown]
  - Skin discolouration [Unknown]
  - Onychoclasis [Unknown]
  - Ocular icterus [Unknown]
  - Skin disorder [Unknown]
  - Erythema [Unknown]
  - Vision blurred [Unknown]
  - Rash [Unknown]
  - Decreased appetite [Unknown]
  - Unevaluable event [Unknown]
  - Vomiting [Not Recovered/Not Resolved]
  - Hypoaesthesia [Unknown]
  - Yellow skin [Unknown]
  - Hypertension [Unknown]
  - Weight decreased [Unknown]
  - Multiple sclerosis relapse [Not Recovered/Not Resolved]
  - Fall [Unknown]

NARRATIVE: CASE EVENT DATE: 2014
